FAERS Safety Report 4848806-9 (Version None)
Quarter: 2005Q4

REPORT INFORMATION
  Report Type: 
  Country: None (occurrence: None)
  Receive Date: 20051208
  Receipt Date: 20051128
  Transmission Date: 20060501
  Serious: Yes (Hospitalization)
  Sender: FDA-Public Use
  Company Number: FR-NOVOPROD-248974

PATIENT
  Sex: Female

DRUGS (3)
  1. INSULATARD NPH HUMAN [Suspect]
     Indication: ILL-DEFINED DISORDER
     Dosage: 32 IU, QD
     Route: 058
     Dates: start: 19970101
  2. INSULATARD NPH HUMAN [Suspect]
     Dosage: 22 IU, QD
     Route: 058
  3. VOGALEN [Concomitant]

REACTIONS (4)
  - ASTHENIA [None]
  - FATIGUE [None]
  - HYPOGLYCAEMIA [None]
  - VERTIGO [None]
